FAERS Safety Report 21762488 (Version 7)
Quarter: 2023Q2

REPORT INFORMATION
  Report Type: Report from Study
  Country: BR (occurrence: BR)
  Receive Date: 20221221
  Receipt Date: 20230504
  Transmission Date: 20230722
  Serious: Yes (Other)
  Sender: FDA-Public Use
  Company Number: BR-JNJFOC-20221037357

PATIENT
  Age: 4 Decade
  Sex: Female
  Weight: 75 kg

DRUGS (4)
  1. SIMPONI [Suspect]
     Active Substance: GOLIMUMAB
     Indication: Psoriatic arthropathy
     Dosage: FIRST DOSE (WEEK 0)
     Route: 058
     Dates: start: 20220916
  2. SIMPONI [Suspect]
     Active Substance: GOLIMUMAB
     Dosage: SECOND DOSE (WEEK 2)
     Route: 058
     Dates: start: 2022
  3. SIMPONI [Suspect]
     Active Substance: GOLIMUMAB
     Route: 058
  4. METHOTREXATE [Concomitant]
     Active Substance: METHOTREXATE

REACTIONS (6)
  - Hysterectomy [Unknown]
  - Psoriatic arthropathy [Not Recovered/Not Resolved]
  - Drug ineffective [Unknown]
  - Wound infection [Not Recovered/Not Resolved]
  - Pharyngitis [Recovering/Resolving]
  - Urinary tract infection [Unknown]

NARRATIVE: CASE EVENT DATE: 20220101
